FAERS Safety Report 6200262-4 (Version None)
Quarter: 2009Q2

REPORT INFORMATION
  Report Type: 
  Country: None (occurrence: None)
  Receive Date: 20090522
  Receipt Date: 20070910
  Transmission Date: 20091009
  Serious: Yes (Hospitalization)
  Sender: FDA-Public Use
  Company Number: US-ALEXION-A200700053

PATIENT
  Sex: Female
  Weight: 58.503 kg

DRUGS (29)
  1. SOLIRIS [Suspect]
     Indication: PAROXYSMAL NOCTURNAL HAEMOGLOBINURIA
     Dates: start: 20060101
  2. SOLIRIS [Suspect]
     Dosage: 900 MG, SINGLE
     Route: 042
     Dates: start: 20070517, end: 20070517
  3. SOLIRIS [Suspect]
     Dosage: 900 MG, SINGLE
     Route: 042
     Dates: start: 20070601, end: 20070601
  4. SOLIRIS [Suspect]
     Dosage: 900 MG, SINGLE
     Route: 042
     Dates: start: 20070615, end: 20070615
  5. SOLIRIS [Suspect]
     Dosage: 900 MG, SINGLE
     Route: 042
     Dates: start: 20070629, end: 20070629
  6. SOLIRIS [Suspect]
     Dosage: 900 MG, SINGLE
     Route: 042
     Dates: start: 20070714, end: 20070714
  7. SOLIRIS [Suspect]
     Dosage: 900 MG, SINGLE
     Route: 042
     Dates: start: 20070727, end: 20070727
  8. SOLIRIS [Suspect]
     Dosage: 900 MG, SINGLE
     Route: 042
     Dates: start: 20070809, end: 20070809
  9. SOLIRIS [Suspect]
     Dosage: 900 MG, SINGLE
     Route: 042
     Dates: start: 20070824, end: 20070824
  10. SOLIRIS [Suspect]
     Dosage: 900 MG, SINGLE
     Route: 042
     Dates: start: 20070907, end: 20070907
  11. SOLIRIS [Suspect]
     Dosage: 900 MG, SINGLE
     Route: 042
     Dates: start: 20070921, end: 20070921
  12. SOLIRIS [Suspect]
     Dosage: 900 MG, SINGLE
     Route: 042
     Dates: start: 20071005, end: 20071005
  13. SOLIRIS [Suspect]
     Dosage: 900 MG, SINGLE
     Route: 042
     Dates: start: 20071019, end: 20071019
  14. SOLIRIS [Suspect]
     Dosage: 900 MG, SINGLE
     Route: 042
     Dates: start: 20071102, end: 20071102
  15. SOLIRIS [Suspect]
     Dosage: 900 MG, SINGLE
     Route: 042
     Dates: start: 20071116, end: 20071116
  16. SOLIRIS [Suspect]
     Dosage: 900 MG, SINGLE
     Route: 042
     Dates: start: 20071130, end: 20071130
  17. SOLIRIS [Suspect]
     Dosage: 900 MG, SINGLE
     Route: 042
     Dates: start: 20071214, end: 20071214
  18. SOLIRIS [Suspect]
     Dosage: 900 MG, SINGLE
     Route: 042
     Dates: start: 20071228, end: 20071228
  19. SOLIRIS [Suspect]
     Dosage: 900 MG, SINGLE
     Route: 042
     Dates: start: 20080111, end: 20080111
  20. SOLIRIS [Suspect]
     Dosage: 900 MG, SINGLE
     Route: 042
     Dates: start: 20080125, end: 20080125
  21. COUMADIN [Concomitant]
     Dosage: 1 MG, QD
     Route: 048
  22. COUMADIN [Concomitant]
     Dosage: 1 MG, QD
     Route: 048
  23. ELAVIL [Concomitant]
     Indication: INSOMNIA
     Dosage: 75 MG, QD, HS
     Route: 048
  24. FOLIC ACID [Concomitant]
     Dosage: 2 MG, BID
     Route: 048
  25. PHENERGAN HCL [Concomitant]
     Indication: NAUSEA
     Dosage: UNK, PRN
     Route: 048
  26. PREDNISONE [Concomitant]
     Dosage: 5 MG, QOD
     Route: 048
  27. PROZAC [Concomitant]
     Dosage: 40 MG, QD
     Route: 048
  28. XANAX [Concomitant]
     Dosage: 1 MG, PRN
     Route: 048
  29. LORTAB [Concomitant]
     Indication: PAIN
     Dosage: 5/500 MG, PRN
     Route: 048

REACTIONS (3)
  - DRUG INEFFECTIVE [None]
  - FATIGUE [None]
  - NAUSEA [None]
